FAERS Safety Report 5077687-6 (Version None)
Quarter: 2006Q3

REPORT INFORMATION
  Report Type: 
  Country: None (occurrence: None)
  Receive Date: 20060810
  Receipt Date: 20060803
  Transmission Date: 20061208
  Serious: Yes (Other)
  Sender: FDA-Public Use
  Company Number: JP-BOEHRINGER INGELHEIM PHARMACEUTICALS, INC.-2006-BP-08954NB

PATIENT
  Age: 70 Year
  Sex: Female

DRUGS (1)
  1. MEXITIL [Suspect]
     Indication: VENTRICULAR EXTRASYSTOLES
     Route: 048

REACTIONS (1)
  - ECZEMA [None]
